FAERS Safety Report 9827774 (Version 1)
Quarter: 2013Q4

REPORT INFORMATION
  Report Type: Spontaneous
  Country: US (occurrence: None)
  Receive Date: 20131120
  Receipt Date: 20131120
  Transmission Date: 20140711
  Serious: Yes (Other)
  Sender: FDA-Public Use
  Company Number: 1000048709

PATIENT
  Age: 68 Year
  Sex: Male

DRUGS (2)
  1. VIIBRYD [Suspect]
     Indication: DEPRESSION
     Route: 048
     Dates: start: 201304, end: 2013
  2. AMPHETAMINE [Suspect]

REACTIONS (3)
  - Fatigue [None]
  - Depression [None]
  - Drug ineffective [None]
